FAERS Safety Report 8979019 (Version 1)
Quarter: 2012Q4

REPORT INFORMATION
  Report Type: Spontaneous
  Country: US (occurrence: None)
  Receive Date: 20121218
  Receipt Date: 20121218
  Transmission Date: 20130627
  Serious: Yes (Hospitalization)
  Sender: FDA-Public Use
  Company Number: None

PATIENT
  Age: 55 Year
  Sex: Male
  Weight: 101.2 kg

DRUGS (2)
  1. CEFEPIME [Suspect]
     Indication: SUBCUTANEOUS ABSCESS
     Route: 042
     Dates: start: 20121114, end: 20121123
  2. CEFEPIME [Suspect]
     Indication: PARASPINAL ABSCESS
     Route: 042
     Dates: start: 20121114, end: 20121123

REACTIONS (5)
  - Chills [None]
  - Malaise [None]
  - Nausea [None]
  - Confusional state [None]
  - Dizziness [None]
